FAERS Safety Report 8475301-0 (Version None)
Quarter: 2012Q2

REPORT INFORMATION
  Report Type: 
  Country: None (occurrence: None)
  Receive Date: 20120628
  Receipt Date: 20120620
  Transmission Date: 20120825
  Serious: Yes (Death, Hospitalization)
  Sender: FDA-Public Use
  Company Number: PH-BAXTER-2012BAX009387

PATIENT
  Sex: Female

DRUGS (1)
  1. DIANEAL PD-2 W/ DEXTROSE 1.5% [Suspect]
     Route: 033
     Dates: start: 20100824

REACTIONS (6)
  - DEATH [None]
  - PNEUMONIA [None]
  - DRY GANGRENE [None]
  - SEPSIS [None]
  - HYPOPHAGIA [None]
  - CONVULSION [None]
